FAERS Safety Report 26205958 (Version 1)
Quarter: 2025Q4

REPORT INFORMATION
  Report Type: Spontaneous
  Country: AU (occurrence: AU)
  Receive Date: 20251229
  Receipt Date: 20251229
  Transmission Date: 20260118
  Serious: Yes (Hospitalization, Other)
  Sender: STRIDES
  Company Number: AU-STRIDES ARCOLAB LIMITED-2025SP016065

PATIENT
  Age: 41 Year
  Sex: Female

DRUGS (2)
  1. VERAPAMIL [Suspect]
     Active Substance: VERAPAMIL HYDROCHLORIDE
     Indication: Ventricular tachycardia
     Dosage: INGESTING SLOW-RELEASE VERAPAMIL
     Route: 048
  2. FLECAINIDE [Suspect]
     Active Substance: FLECAINIDE
     Indication: Ventricular tachycardia
     Dosage: INGESTING FLECAINIDE
     Route: 048

REACTIONS (8)
  - Vasoplegia syndrome [Recovered/Resolved]
  - Cardiotoxicity [Recovered/Resolved]
  - Cardiogenic shock [Recovered/Resolved]
  - Acute kidney injury [Recovered/Resolved]
  - Toxicity to various agents [Recovered/Resolved]
  - Metabolic acidosis [Recovered/Resolved]
  - Overdose [Unknown]
  - Off label use [Unknown]
